FAERS Safety Report 16009064 (Version 1)
Quarter: 2019Q1

REPORT INFORMATION
  Report Type: Spontaneous
  Country: GB (occurrence: GB)
  Receive Date: 20190226
  Receipt Date: 20190226
  Transmission Date: 20190418
  Serious: Yes (Death, Hospitalization)
  Sender: FDA-Public Use
  Company Number: GB-NOVOPROD-648387

PATIENT
  Age: 85 Year
  Sex: Female

DRUGS (2)
  1. NOVOMIX 30 [Suspect]
     Active Substance: INSULIN ASPART
     Indication: TYPE 2 DIABETES MELLITUS
     Dosage: UNK
     Route: 065
  2. VICTOZA [Suspect]
     Active Substance: LIRAGLUTIDE
     Indication: TYPE 2 DIABETES MELLITUS
     Dosage: UNK
     Route: 065

REACTIONS (8)
  - Constipation [Unknown]
  - Blood glucose abnormal [Unknown]
  - Product dispensing error [Fatal]
  - Diabetic ketoacidosis [Fatal]
  - Depressed mood [Unknown]
  - Amnesia [Unknown]
  - Decreased appetite [Unknown]
  - Urinary incontinence [Unknown]

NARRATIVE: CASE EVENT DATE: 20160401
